FAERS Safety Report 4269695-X (Version None)
Quarter: 2004Q1

REPORT INFORMATION
  Report Type: 
  Country: None (occurrence: None)
  Receive Date: 20040112
  Receipt Date: 20031230
  Transmission Date: 20041129
  Serious: Yes (Hospitalization, Disabling)
  Sender: FDA-Public Use
  Company Number: 2003127120

PATIENT
  Age: 88 Year
  Sex: Male

DRUGS (4)
  1. AMLODIPINE [Suspect]
     Indication: HYPERTENSION
     Dosage: ORAL
     Route: 048
  2. INDAPAMIDE [Suspect]
     Indication: HYPERTENSION
     Dosage: ORAL
     Route: 048
  3. CHLORAMBUCIL (CHLORAMBUCIL) [Suspect]
     Indication: CHRONIC LYMPHOCYTIC LEUKAEMIA
     Dates: start: 20010115, end: 20031201
  4. ALL OTHER THERAPEUTIC PRODUCTS [Suspect]
     Indication: SKIN PAPILLOMA
     Dates: start: 20030905, end: 20030905

REACTIONS (9)
  - ACINETOBACTER INFECTION [None]
  - CELLULITIS [None]
  - FINGER AMPUTATION [None]
  - LYMPHOCYTIC INFILTRATION [None]
  - OEDEMA [None]
  - SEPSIS [None]
  - SEPTIC NECROSIS [None]
  - SKIN NECROSIS [None]
  - STAPHYLOCOCCAL INFECTION [None]
